FAERS Safety Report 17109183 (Version 1)
Quarter: 2019Q4

REPORT INFORMATION
  Report Type: Spontaneous
  Country: FR (occurrence: FR)
  Receive Date: 20191204
  Receipt Date: 20191204
  Transmission Date: 20200122
  Serious: Yes (Hospitalization)
  Sender: FDA-Public Use
  Company Number: FR-TEVA-2019-FR-1144631

PATIENT
  Sex: Female
  Weight: 58 kg

DRUGS (2)
  1. OMEPRAZOLE. [Suspect]
     Active Substance: OMEPRAZOLE
     Indication: PRODUCT USED FOR UNKNOWN INDICATION
     Dosage: 20 MG PER DAY
     Route: 048
  2. PANTOPRAZOLE [Suspect]
     Active Substance: PANTOPRAZOLE
     Indication: PRODUCT USED FOR UNKNOWN INDICATION
     Dosage: 20 MG PER DAY
     Route: 048
     Dates: start: 20180222, end: 20180305

REACTIONS (3)
  - Femur fracture [Recovered/Resolved with Sequelae]
  - Radius fracture [Recovered/Resolved with Sequelae]
  - Spinal compression fracture [Recovered/Resolved with Sequelae]

NARRATIVE: CASE EVENT DATE: 20180222
